FAERS Safety Report 12154882 (Version 1)
Quarter: 2016Q1

REPORT INFORMATION
  Report Type: Spontaneous
  Country: US (occurrence: None)
  Receive Date: 20160304
  Receipt Date: 20160304
  Transmission Date: 20160526
  Serious: Yes (Other)
  Sender: FDA-Public Use
  Company Number: None

PATIENT
  Sex: Female
  Weight: 46.81 kg

DRUGS (1)
  1. OXYCODONE ER 80 MG FILM COATED TABLETS [Suspect]
     Active Substance: OXYCODONE
     Indication: PAIN
     Route: 048
     Dates: start: 20110512, end: 20130629

REACTIONS (2)
  - Product substitution issue [None]
  - Gastric disorder [None]

NARRATIVE: CASE EVENT DATE: 2005
